FAERS Safety Report 25595829 (Version 1)
Quarter: 2025Q3

REPORT INFORMATION
  Report Type: Report from Study
  Country: EU (occurrence: EU)
  Receive Date: 20250723
  Receipt Date: 20250723
  Transmission Date: 20251021
  Serious: Yes (Other)
  Sender: AUROBINDO
  Company Number: EU-BRISTOL-MYERS SQUIBB COMPANY-2025-094684

PATIENT
  Age: 28 Year
  Sex: Female

DRUGS (8)
  1. FENOFIBRATE [Suspect]
     Active Substance: FENOFIBRATE
     Indication: Pinealoblastoma
     Dosage: 90 MILLIGRAM/SQ. METER, ONCE A DAY
     Route: 048
  2. CELECOXIB [Suspect]
     Active Substance: CELECOXIB
     Indication: Pinealoblastoma
     Route: 048
  3. THALIDOMIDE [Suspect]
     Active Substance: THALIDOMIDE
     Indication: Pinealoblastoma
     Dosage: 3 MILLIGRAM/KILOGRAM, ONCE A DAY
     Route: 048
  4. ETOPOSIDE [Suspect]
     Active Substance: ETOPOSIDE
     Indication: Pinealoblastoma
     Route: 065
  5. ETOPOSIDE [Suspect]
     Active Substance: ETOPOSIDE
     Route: 065
  6. CYCLOPHOSPHAMIDE [Suspect]
     Active Substance: CYCLOPHOSPHAMIDE
     Indication: Pinealoblastoma
     Route: 065
  7. BEVACIZUMAB [Suspect]
     Active Substance: BEVACIZUMAB
     Indication: Pinealoblastoma
     Dosage: 10 MILLIGRAM/KILOGRAM, UNK
     Route: 042
  8. CYTARABINE [Suspect]
     Active Substance: CYTARABINE
     Indication: Pinealoblastoma
     Route: 065

REACTIONS (4)
  - Neutropenia [Unknown]
  - Meningitis bacterial [Unknown]
  - Neurotoxicity [Unknown]
  - Off label use [Unknown]
